FAERS Safety Report 4784461-4 (Version None)
Quarter: 2005Q3

REPORT INFORMATION
  Report Type: 
  Country: None (occurrence: None)
  Receive Date: 20050929
  Receipt Date: 20050929
  Transmission Date: 20060218
  Serious: No
  Sender: FDA-Public Use
  Company Number: None

PATIENT
  Age: 53 Year
  Sex: Male
  Weight: 78.9259 kg

DRUGS (2)
  1. FENTANYL PATCH (GENERIC) MYLAN [Suspect]
     Indication: FIBROMYALGIA
     Dosage: 100 MG /HR TOPICAL Q 3 D [SEVERAL YEARS]
     Route: 061
  2. FENTANYL PATCH (GENERIC) MYLAN [Suspect]
     Indication: PAIN
     Dosage: 100 MG /HR TOPICAL Q 3 D [SEVERAL YEARS]
     Route: 061

REACTIONS (3)
  - CONVULSION [None]
  - INCORRECT DRUG ADMINISTRATION DURATION [None]
  - SYNCOPE [None]
